FAERS Safety Report 5527863-0 (Version None)
Quarter: 2007Q4

REPORT INFORMATION
  Report Type: 
  Country: None (occurrence: None)
  Receive Date: 20071128
  Receipt Date: 20071126
  Transmission Date: 20080405
  Serious: Yes (Other)
  Sender: FDA-Public Use
  Company Number: GB-BRISTOL-MYERS SQUIBB COMPANY-13993670

PATIENT
  Age: 31 Year
  Sex: Female

DRUGS (5)
  1. TRAZODONE HCL [Suspect]
     Indication: ANXIETY
     Route: 048
     Dates: start: 20060731, end: 20060804
  2. HUMALOG [Concomitant]
  3. INSULIN GLARGINE [Concomitant]
  4. LEVOTHYROXINE SODIUM [Concomitant]
  5. SERTRALINE [Concomitant]

REACTIONS (1)
  - BLOOD INSULIN INCREASED [None]
